FAERS Safety Report 16116449 (Version 1)
Quarter: 2019Q1

REPORT INFORMATION
  Report Type: Spontaneous
  Country: FR (occurrence: FR)
  Receive Date: 20190326
  Receipt Date: 20190326
  Transmission Date: 20190418
  Serious: Yes (Other)
  Sender: FDA-Public Use
  Company Number: FR-TEVA-2019-FR-1029049

PATIENT
  Age: 82 Year
  Sex: Female

DRUGS (17)
  1. LANSOPRAZOLE. [Concomitant]
     Active Substance: LANSOPRAZOLE
     Indication: PROPHYLAXIS
     Dosage: 15 MILLIGRAM DAILY;
     Route: 048
     Dates: start: 20181028
  2. ACIDE FOLIQUE [Concomitant]
     Active Substance: FOLIC ACID
     Indication: ANAEMIA
     Route: 048
     Dates: start: 20181105, end: 20190110
  3. SERESTA 10 MG, COMPRIM? [Concomitant]
     Active Substance: OXAZEPAM
     Indication: ANXIETY
     Dosage: 1 DOSAGE FORMS DAILY;
     Route: 048
     Dates: start: 20181028
  4. ATORVASTATINE [Suspect]
     Active Substance: ATORVASTATIN
     Indication: ACUTE CORONARY SYNDROME
     Dosage: 40 MILLIGRAM DAILY;
     Route: 048
     Dates: start: 20181226, end: 20190117
  5. ACIDE CLAVULANIQUE [Suspect]
     Active Substance: CLAVULANIC ACID
     Indication: LUNG DISORDER
     Dosage: 375 MILLIGRAM DAILY;
     Route: 048
     Dates: start: 20181226, end: 20190102
  6. CHLORURE DE POTASSIUM [Concomitant]
     Active Substance: POTASSIUM CHLORIDE
     Indication: PROPHYLAXIS
     Route: 048
     Dates: start: 20181028
  7. CLOPIDOGREL [Concomitant]
     Active Substance: CLOPIDOGREL BISULFATE
     Indication: ACUTE CORONARY SYNDROME
     Dosage: 75 MILLIGRAM DAILY;
     Route: 048
     Dates: start: 20181227
  8. LACTULOSE. [Concomitant]
     Active Substance: LACTULOSE
     Indication: CONSTIPATION
     Route: 048
  9. CORTANCYL 5 MG, COMPRIM? [Concomitant]
     Active Substance: PREDNISONE
     Indication: PULMONARY FIBROSIS
     Dosage: 2 DOSAGE FORMS DAILY;
     Route: 048
  10. MIANSERINE (CHLORHYDRATE DE) [Concomitant]
     Active Substance: MIANSERIN HYDROCHLORIDE
     Indication: DEPRESSION
     Dosage: 10 MILLIGRAM DAILY;
     Route: 048
     Dates: start: 20181028
  11. SERTRALINE [Suspect]
     Active Substance: SERTRALINE HYDROCHLORIDE
     Indication: DEPRESSION
     Dosage: 50MG / DAY FROM 26/12 TO 10/01 THEN 25MG / DAY FROM 10 TO 17/01
     Route: 048
     Dates: start: 20181226, end: 20190117
  12. HYDROXYZINE (CHLORHYDRATE D^) [Concomitant]
     Active Substance: HYDROXYZINE HYDROCHLORIDE
     Dosage: 75 MILLIGRAM DAILY;
     Route: 048
     Dates: start: 20181226, end: 20190104
  13. AMOXICILLINE [Suspect]
     Active Substance: AMOXICILLIN
     Indication: LUNG DISORDER
     Dosage: 3 GRAM DAILY;
     Route: 048
     Dates: start: 20181226, end: 20190102
  14. IPRATROPIUM (BROMURE D^) [Concomitant]
     Active Substance: IPRATROPIUM
     Indication: RESPIRATORY FAILURE
     Dosage: 3 DOSAGE FORMS DAILY;
     Route: 055
     Dates: start: 20181224, end: 20190112
  15. BISOPROLOL (FUMARATE ACIDE DE) [Concomitant]
     Active Substance: BISOPROLOL FUMARATE
     Dosage: 2.5 MILLIGRAM DAILY;
     Route: 048
     Dates: start: 20181226
  16. FUMAFER [Concomitant]
     Active Substance: FERROUS FUMARATE
     Indication: ANAEMIA
     Dosage: 1 DOSAGE FORMS DAILY;
     Route: 048
     Dates: start: 20181105, end: 20190110
  17. NEFOPAM (CHLORHYDRATE DE) [Concomitant]
     Active Substance: NEFOPAM HYDROCHLORIDE
     Indication: PAIN
     Dosage: 80 MILLIGRAM DAILY;
     Route: 048
     Dates: start: 20181029, end: 20190110

REACTIONS (1)
  - Mixed liver injury [Recovered/Resolved]

NARRATIVE: CASE EVENT DATE: 20190110
